FAERS Safety Report 4476459-0 (Version None)
Quarter: 2004Q4

REPORT INFORMATION
  Report Type: 
  Country: None (occurrence: None)
  Receive Date: 20041012
  Receipt Date: 20040929
  Transmission Date: 20050328
  Serious: Yes (Other)
  Sender: FDA-Public Use
  Company Number: 209241

PATIENT
  Age: 11 Week
  Sex: Male

DRUGS (1)
  1. NUTROPIN AQ [Suspect]
     Indication: GROWTH HORMONE DEFICIENCY
     Dosage: 0.375 MG/KG, QD, SUBCUTANEOUS
     Route: 058

REACTIONS (2)
  - ADENOCARCINOMA [None]
  - LYMPHADENOPATHY [None]
